FAERS Safety Report 8907517 (Version 1)
Quarter: 2012Q4

REPORT INFORMATION
  Report Type: 
  Country: GR (occurrence: GR)
  Receive Date: 20121114
  Receipt Date: 20121114
  Transmission Date: 20130627
  Serious: Yes (Other)
  Sender: FDA-Public Use
  Company Number: GR-PFIZER INC-2012282117

PATIENT
  Age: 50 Year
  Sex: Female

DRUGS (1)
  1. XANAX [Suspect]
     Dosage: 1 mg, 1x/day
     Route: 048
     Dates: start: 20121111

REACTIONS (3)
  - Intentional drug misuse [Unknown]
  - Speech disorder [Unknown]
  - Communication disorder [Unknown]
